FAERS Safety Report 7503519-X (Version None)
Quarter: 2011Q2

REPORT INFORMATION
  Report Type: 
  Country: None (occurrence: None)
  Receive Date: 20110525
  Receipt Date: 20110516
  Transmission Date: 20111010
  Serious: Yes (Hospitalization)
  Sender: FDA-Public Use
  Company Number: US-ROCHE-777651

PATIENT
  Sex: Male

DRUGS (1)
  1. ACCUTANE [Suspect]
     Route: 048
     Dates: start: 19990101, end: 20010101

REACTIONS (2)
  - INTESTINAL RESECTION [None]
  - GASTROINTESTINAL DISORDER [None]
